FAERS Safety Report 6404363-7 (Version None)
Quarter: 2009Q4

REPORT INFORMATION
  Report Type: 
  Country: None (occurrence: None)
  Receive Date: 20091016
  Receipt Date: 20091008
  Transmission Date: 20100525
  Serious: Yes (Other)
  Sender: FDA-Public Use
  Company Number: US-ASTRAZENECA-2009SE14220

PATIENT
  Age: 13899 Day
  Sex: Male

DRUGS (3)
  1. SEROQUEL XR [Suspect]
     Route: 048
  2. LAMICTAL [Concomitant]
     Route: 048
     Dates: start: 20060205
  3. ADERAL [Concomitant]
     Dosage: 30
     Route: 048
     Dates: start: 20060213

REACTIONS (1)
  - SYNCOPE [None]
